FAERS Safety Report 21270618 (Version 1)
Quarter: 2022Q3

REPORT INFORMATION
  Report Type: Spontaneous
  Country: US (occurrence: None)
  Receive Date: 20220829
  Receipt Date: 20220829
  Transmission Date: 20221027
  Serious: Yes (Death)
  Sender: FDA-Public Use
  Company Number: None

PATIENT
  Age: 60 Year
  Sex: Male
  Weight: 69.67 kg

DRUGS (17)
  1. WELIREG [Suspect]
     Active Substance: BELZUTIFAN
     Indication: Prostate cancer
     Dosage: FREQUENCY : DAILY;?
     Route: 048
  2. AFINITOR [Concomitant]
     Active Substance: EVEROLIMUS
  3. ALBUTEROL SULFATE [Concomitant]
  4. BASAGLAR [Concomitant]
     Active Substance: INSULIN GLARGINE
  5. BENZONATATE [Concomitant]
     Active Substance: BENZONATATE
  6. BUMETANIDE [Concomitant]
     Active Substance: BUMETANIDE
  7. DRONABINOL [Concomitant]
     Active Substance: DRONABINOL
  8. ELIQUIS [Concomitant]
     Active Substance: APIXABAN
  9. ENTRESTO [Concomitant]
     Active Substance: SACUBITRIL\VALSARTAN
  10. FARXIGA [Concomitant]
     Active Substance: DAPAGLIFLOZIN PROPANEDIOL
  11. FENOFIBRATE [Concomitant]
     Active Substance: FENOFIBRATE
  12. lnspra [Concomitant]
  13. METOPROLOL SUCCINATE [Concomitant]
     Active Substance: METOPROLOL SUCCINATE
  14. NOVOLOG [Concomitant]
     Active Substance: INSULIN ASPART
  15. ONDANSETRON [Concomitant]
     Active Substance: ONDANSETRON
  16. OXYCODONE [Concomitant]
     Active Substance: OXYCODONE
  17. PROMETHAZINE [Concomitant]
     Active Substance: PROMETHAZINE HYDROCHLORIDE

REACTIONS (1)
  - Death [None]
